FAERS Safety Report 6308759-3 (Version None)
Quarter: 2009Q3

REPORT INFORMATION
  Report Type: 
  Country: None (occurrence: None)
  Receive Date: 20090813
  Receipt Date: 20080616
  Transmission Date: 20100115
  Serious: No
  Sender: FDA-Public Use
  Company Number: US-ALLERGAN-0807323US

PATIENT
  Age: 78 Year
  Sex: Female

DRUGS (6)
  1. COMBIGAN [Suspect]
     Indication: GLAUCOMA
     Dosage: UNK, BID
     Route: 047
     Dates: start: 20080506, end: 20080524
  2. HYDROCHLOROTHIAZIDE [Concomitant]
     Indication: BLOOD PRESSURE
  3. METOPROLOL SUCCINATE [Concomitant]
  4. BENZAPRIL [Concomitant]
  5. TRICOR [Concomitant]
  6. ASPIRIN [Concomitant]
     Dosage: 81 MG, UNK

REACTIONS (4)
  - DECREASED APPETITE [None]
  - FEELING ABNORMAL [None]
  - MYALGIA [None]
  - WEIGHT DECREASED [None]
